FAERS Safety Report 9161347 (Version 1)
Quarter: 2013Q1

REPORT INFORMATION
  Report Type: Report from Study
  Country: US (occurrence: US)
  Receive Date: 20130313
  Receipt Date: 20130313
  Transmission Date: 20140127
  Serious: No
  Sender: FDA-Public Use
  Company Number: US-009507513-1303USA002983

PATIENT
  Sex: Female

DRUGS (6)
  1. BOCEPREVIR [Suspect]
     Indication: CHRONIC HEPATITIS C
     Dosage: 3 DF, QD
     Route: 048
     Dates: start: 20111105, end: 20120713
  2. PEGINTERFERON ALFA-2A [Suspect]
     Indication: CHRONIC HEPATITIS C
     Dosage: 180 MICROGRAM, QW
     Dates: start: 20111007, end: 20120713
  3. RIBAVIRIN [Suspect]
     Indication: CHRONIC HEPATITIS C
     Dosage: 1200 MG, QD
     Dates: start: 20111007
  4. RIBAVIRIN [Suspect]
     Dosage: 400 MG, UNK
     Dates: start: 20111209
  5. RIBAVIRIN [Suspect]
     Dosage: 600 MG, UNK
     Dates: start: 20111214, end: 20120713
  6. KLONOPIN [Suspect]
     Indication: ANXIETY

REACTIONS (13)
  - Insomnia [Unknown]
  - Headache [Unknown]
  - Sensory loss [Not Recovered/Not Resolved]
  - Constipation [Unknown]
  - Eyelid pain [Unknown]
  - Fatigue [Unknown]
  - Depression [Unknown]
  - Dehydration [Unknown]
  - Haemoglobin decreased [Unknown]
  - Pain [Unknown]
  - Anxiety [Unknown]
  - Alopecia [Unknown]
  - Dyspepsia [Unknown]
